FAERS Safety Report 14237839 (Version 1)
Quarter: 2017Q4

REPORT INFORMATION
  Report Type: Spontaneous
  Country: US (occurrence: US)
  Receive Date: 20171130
  Receipt Date: 20171130
  Transmission Date: 20180321
  Serious: No
  Sender: FDA-Public Use
  Company Number: US-B.I. PHARMACEUTICALS,INC./RIDGEFIELD-2017-BI-063802

PATIENT
  Age: 47 Year
  Sex: Female

DRUGS (1)
  1. COMBIVENT [Suspect]
     Active Substance: ALBUTEROL SULFATE\IPRATROPIUM BROMIDE
     Indication: DYSPNOEA
     Dosage: FORM STRENGTH: 20 MCG / 100 MCG;
     Route: 055
     Dates: start: 2007

REACTIONS (5)
  - Diabetic retinal oedema [Unknown]
  - Fibromyalgia [Unknown]
  - Nasopharyngitis [Not Recovered/Not Resolved]
  - Diabetic neuropathy [Unknown]
  - Eye haemorrhage [Unknown]

NARRATIVE: CASE EVENT DATE: 2014
